FAERS Safety Report 23914234 (Version 1)
Quarter: 2024Q2

REPORT INFORMATION
  Report Type: Spontaneous
  Country: US (occurrence: US)
  Receive Date: 20240529
  Receipt Date: 20240529
  Transmission Date: 20240716
  Serious: Yes (Death, Hospitalization)
  Sender: FDA-Public Use
  Company Number: US-MYLANLABS-2024M1047740

PATIENT
  Sex: Male

DRUGS (6)
  1. SULFAMETHOXAZOLE\TRIMETHOPRIM [Suspect]
     Active Substance: SULFAMETHOXAZOLE\TRIMETHOPRIM
     Indication: Pneumocystis jirovecii pneumonia
     Dosage: UNK; UNSPECIFIED HIGH DOSE
     Route: 065
  2. SULFAMETHOXAZOLE\TRIMETHOPRIM [Suspect]
     Active Substance: SULFAMETHOXAZOLE\TRIMETHOPRIM
     Indication: Pulmonary nocardiosis
  3. CILASTATIN SODIUM\IMIPENEM [Suspect]
     Active Substance: CILASTATIN SODIUM\IMIPENEM
     Indication: Pneumocystis jirovecii pneumonia
     Dosage: UNK; UNSPECIFIED HIGH DOSE
     Route: 065
  4. CILASTATIN SODIUM\IMIPENEM [Suspect]
     Active Substance: CILASTATIN SODIUM\IMIPENEM
     Indication: Pulmonary nocardiosis
  5. AMIKACIN [Suspect]
     Active Substance: AMIKACIN
     Indication: Pneumocystis jirovecii pneumonia
     Dosage: UNK; UNSPECIFIED HIGH DOSE
     Route: 065
  6. AMIKACIN [Suspect]
     Active Substance: AMIKACIN
     Indication: Pulmonary nocardiosis

REACTIONS (3)
  - Drug ineffective [Fatal]
  - Bladder obstruction [Unknown]
  - Crystalluria [Unknown]
